FAERS Safety Report 19931092 (Version 1)
Quarter: 2021Q4

REPORT INFORMATION
  Report Type: Spontaneous
  Country: FR (occurrence: FR)
  Receive Date: 20211008
  Receipt Date: 20211008
  Transmission Date: 20220303
  Serious: Yes (Hospitalization)
  Sender: FDA-Public Use
  Company Number: None

PATIENT
  Age: 72 Year
  Sex: Male
  Weight: 81 kg

DRUGS (4)
  1. LOVENOX [Suspect]
     Active Substance: ENOXAPARIN SODIUM
     Indication: Thrombosis prophylaxis
     Dosage: 4000 IU, QD
     Route: 048
     Dates: start: 20210803, end: 20210812
  2. NIMODIPINE [Suspect]
     Active Substance: NIMODIPINE
     Indication: Hypertension
     Dosage: 20 MG, QD
     Route: 048
     Dates: start: 20210803, end: 20210809
  3. OXYCODONE HYDROCHLORIDE [Suspect]
     Active Substance: OXYCODONE HYDROCHLORIDE
     Indication: Pain
     Dosage: 5 MG, QD
     Route: 048
     Dates: start: 20210803, end: 20210809
  4. LOXOPROFEN SODIUM [Suspect]
     Active Substance: LOXOPROFEN SODIUM
     Indication: Hypertension
     Dosage: 20 MG, QD
     Route: 048
     Dates: start: 20210803, end: 20210809

REACTIONS (1)
  - Rash maculo-papular [Recovered/Resolved]
